FAERS Safety Report 9833491 (Version 1)
Quarter: 2014Q1

REPORT INFORMATION
  Report Type: Report from Study
  Country: ZA (occurrence: ZA)
  Receive Date: 20140122
  Receipt Date: 20140122
  Transmission Date: 20141002
  Serious: Yes (Death)
  Sender: FDA-Public Use
  Company Number: ZA-ROCHE-1336205

PATIENT
  Sex: Male

DRUGS (8)
  1. RECORMON [Suspect]
     Indication: NEPHROGENIC ANAEMIA
     Route: 058
     Dates: start: 201308
  2. RECORMON [Suspect]
     Route: 058
     Dates: start: 20100602
  3. RECORMON [Suspect]
     Route: 058
     Dates: start: 201011
  4. MIRCERA [Suspect]
     Indication: NEPHROGENIC ANAEMIA
     Route: 058
     Dates: start: 201106
  5. MIRCERA [Suspect]
     Route: 058
     Dates: start: 201109
  6. MIRCERA [Suspect]
     Route: 058
     Dates: start: 201203
  7. MIRCERA [Suspect]
     Route: 058
     Dates: start: 201205
  8. MIRCERA [Suspect]
     Route: 058
     Dates: start: 201302

REACTIONS (1)
  - Disease progression [Fatal]
